FAERS Safety Report 10584160 (Version 1)
Quarter: 2014Q4

REPORT INFORMATION
  Report Type: Report from Study
  Country: FR (occurrence: FR)
  Receive Date: 20141114
  Receipt Date: 20141114
  Transmission Date: 20150529
  Serious: Yes (Other)
  Sender: FDA-Public Use
  Company Number: FR-US-EMD SERONO, INC.-7115887

PATIENT
  Age: 34 Year
  Sex: Female

DRUGS (1)
  1. PLACEBO [Suspect]
     Active Substance: UNSPECIFIED INGREDIENT
     Indication: MULTIPLE SCLEROSIS
     Route: 048
     Dates: start: 20060106, end: 20070102

REACTIONS (3)
  - Abortion spontaneous [Recovered/Resolved]
  - Pregnancy [Recovered/Resolved]
  - Maternal exposure before pregnancy [Recovered/Resolved]

NARRATIVE: CASE EVENT DATE: 201006
